FAERS Safety Report 12312607 (Version 3)
Quarter: 2016Q2

REPORT INFORMATION
  Report Type: Spontaneous
  Country: PL (occurrence: PL)
  Receive Date: 20160428
  Receipt Date: 20160606
  Transmission Date: 20160815
  Serious: Yes (Death, Hospitalization, Other)
  Sender: FDA-Public Use
  Company Number: PL-PFIZER INC-2016220294

PATIENT
  Age: 67 Year
  Sex: Male

DRUGS (3)
  1. SUTENT [Suspect]
     Active Substance: SUNITINIB MALATE
     Dosage: 25 MG, CYCLIC
  2. SUTENT [Suspect]
     Active Substance: SUNITINIB MALATE
     Dosage: 37.5 MG, CYCLIC
  3. SUTENT [Suspect]
     Active Substance: SUNITINIB MALATE
     Indication: RENAL CANCER METASTATIC
     Dosage: 50 MG, CYCLIC
     Dates: start: 201512

REACTIONS (11)
  - Decreased appetite [Unknown]
  - Blood pressure decreased [Unknown]
  - Death [Fatal]
  - Cardiac failure [Not Recovered/Not Resolved]
  - Asthenia [Not Recovered/Not Resolved]
  - Hair colour changes [Unknown]
  - Cerebrovascular accident [Unknown]
  - Ageusia [Unknown]
  - Atrial fibrillation [Not Recovered/Not Resolved]
  - Oedema peripheral [Not Recovered/Not Resolved]
  - Somnolence [Not Recovered/Not Resolved]

NARRATIVE: CASE EVENT DATE: 201605
